FAERS Safety Report 8581603-X (Version None)
Quarter: 2012Q3

REPORT INFORMATION
  Report Type: 
  Country: None (occurrence: None)
  Receive Date: 20120809
  Receipt Date: 20120731
  Transmission Date: 20120928
  Serious: Yes (Hospitalization, Other)
  Sender: FDA-Public Use
  Company Number: US-ASTRAZENECA-2012SE24814

PATIENT
  Age: 20995 Day
  Sex: Male

DRUGS (12)
  1. BRILINTA [Suspect]
     Indication: CORONARY ARTERY DISEASE
     Route: 048
     Dates: start: 20110830, end: 20120308
  2. BIFERA [Concomitant]
     Indication: ANAEMIA
     Dosage: 22 MG + 25 MCG + 1 MG
     Route: 048
     Dates: start: 20110822
  3. METOPROLOL TARTRATE [Concomitant]
     Indication: CORONARY ARTERY DISEASE
     Route: 048
  4. TRICOR [Concomitant]
     Indication: DYSLIPIDAEMIA
     Dosage: 40 MG
     Route: 048
     Dates: start: 20110201
  5. LEVOTHYROXINE SODIUM [Concomitant]
     Indication: HYPOTHYROIDISM
     Dosage: 88 MCG
     Route: 048
  6. BIFERA [Concomitant]
     Indication: IRON DEFICIENCY
     Dosage: 22 MG + 25 MCG + 1 MG
     Route: 048
     Dates: start: 20110822
  7. ISOSORBIDEMONONITRATE ER [Concomitant]
     Indication: CORONARY ARTERY DISEASE
     Dosage: 30 MG
     Route: 048
  8. SIMVASTATIN [Concomitant]
     Indication: DYSLIPIDAEMIA
     Dosage: 40 MG
     Route: 048
  9. ASPIRIN [Concomitant]
     Route: 048
     Dates: start: 20110823
  10. NIASPAN [Concomitant]
     Indication: DYSLIPIDAEMIA
     Dosage: 1000 MG
     Route: 048
     Dates: start: 20110201
  11. ASPIRIN [Concomitant]
     Route: 048
     Dates: end: 20110822
  12. LISINOPRIL [Concomitant]
     Indication: HYPERTENSION
     Dosage: 20 MG
     Route: 048

REACTIONS (1)
  - HAEMORRHOIDAL HAEMORRHAGE [None]
